FAERS Safety Report 20827273 (Version 2)
Quarter: 2022Q2

REPORT INFORMATION
  Report Type: Spontaneous
  Country: CA (occurrence: CA)
  Receive Date: 20220513
  Receipt Date: 20220630
  Transmission Date: 20220721
  Serious: Yes (Death, Hospitalization)
  Sender: FDA-Public Use
  Company Number: CA-PFIZER INC-202200705668

PATIENT
  Age: 69 Year
  Sex: Male
  Weight: 150 kg

DRUGS (23)
  1. VYNDAQEL [Suspect]
     Active Substance: TAFAMIDIS MEGLUMINE
     Indication: Cardiac amyloidosis
     Dosage: 80 MG, 1X/DAY
     Route: 048
     Dates: start: 20220210
  2. DILTIAZEM [Concomitant]
     Active Substance: DILTIAZEM
     Dosage: 120 MG, DAILY
  3. LASIX [Concomitant]
     Active Substance: FUROSEMIDE
     Dosage: 80 MG, 2X/DAY
  4. ELIQUIS [Concomitant]
     Active Substance: APIXABAN
     Dosage: 5 MG, 2X/DAY
  5. EURO-K20 [Concomitant]
     Dosage: 20 MEQ, DAILY
  6. METOPROLOL [Concomitant]
     Active Substance: METOPROLOL
     Dosage: 50 MG, 2X/DAY
  7. ROSUVASTATIN [Concomitant]
     Active Substance: ROSUVASTATIN
     Dosage: 10 MG, DAILY
  8. DIGOXIN [Concomitant]
     Active Substance: DIGOXIN
     Dosage: 0.125 MG, DAILY
  9. METOLAZONE [Concomitant]
     Active Substance: METOLAZONE
     Dosage: 2.5 MG, WEEKLY
  10. LINAGLIPTIN\METFORMIN HYDROCHLORIDE [Concomitant]
     Active Substance: LINAGLIPTIN\METFORMIN HYDROCHLORIDE
     Dosage: 2.5/500 MG, 2X/DAY
  11. PREGABALIN [Concomitant]
     Active Substance: PREGABALIN
     Dosage: 150 MG, 3X/DAY
  12. TRAZODONE [Concomitant]
     Active Substance: TRAZODONE HYDROCHLORIDE
     Dosage: 100 MG, DAILY (AT BEDTIME)
  13. DULOXETINE [Concomitant]
     Active Substance: DULOXETINE
     Dosage: 30 MG, DAILY
  14. LEVOTHYROXINE [Concomitant]
     Active Substance: LEVOTHYROXINE
     Dosage: 200 UG, DAILY
  15. TAMSULOSIN [Concomitant]
     Active Substance: TAMSULOSIN
     Dosage: 0.4 MG, DAILY
  16. VITAMINS NOS [Concomitant]
     Active Substance: VITAMINS
     Dosage: 1000 U, DAILY
  17. METHOTREXATE [Concomitant]
     Active Substance: METHOTREXATE
     Dosage: 15 MG, WEEKLY
  18. FOLIC ACID [Concomitant]
     Active Substance: FOLIC ACID
     Dosage: 5 MG, 1X/DAY
  19. DEXAMETHASONE [Concomitant]
     Active Substance: DEXAMETHASONE
  20. HEPARIN [Concomitant]
     Active Substance: HEPARIN SODIUM
  21. TRESIBA [Concomitant]
     Active Substance: INSULIN DEGLUDEC
  22. APIDRA [Concomitant]
     Active Substance: INSULIN GLULISINE
  23. LANSOPRAZOLE [Concomitant]
     Active Substance: LANSOPRAZOLE

REACTIONS (3)
  - Respiratory failure [Fatal]
  - COVID-19 pneumonia [Fatal]
  - Acute kidney injury [Fatal]
